FAERS Safety Report 7942394-6 (Version None)
Quarter: 2011Q4

REPORT INFORMATION
  Report Type: 
  Country: None (occurrence: None)
  Receive Date: 20111128
  Receipt Date: 20111117
  Transmission Date: 20120403
  Serious: Yes (Death, Other)
  Sender: FDA-Public Use
  Company Number: US-CELGENEUS-163-21880-11113026

PATIENT
  Age: 76 Year
  Sex: Male

DRUGS (10)
  1. METOPROLOL TARTRATE [Concomitant]
     Route: 065
  2. LOSARTAN POTASSIUM [Concomitant]
     Route: 065
  3. INDOMETHACIN [Concomitant]
     Route: 065
  4. LASIX [Concomitant]
     Route: 065
  5. INSULIN [Concomitant]
     Route: 065
  6. REVLIMID [Suspect]
     Dosage: 5 MILLIGRAM
     Route: 048
     Dates: start: 20101101, end: 20110501
  7. FINASTERIDE [Concomitant]
     Route: 065
  8. ALENDRONATE SODIUM [Concomitant]
     Route: 065
  9. REVLIMID [Suspect]
     Indication: MULTIPLE MYELOMA
     Dosage: 5 MILLIGRAM
     Route: 048
     Dates: start: 20100601, end: 20100801
  10. ALLOPURINOL [Concomitant]
     Route: 065

REACTIONS (3)
  - PANCYTOPENIA [None]
  - DEATH [None]
  - DISEASE PROGRESSION [None]
